FAERS Safety Report 22311193 (Version 2)
Quarter: 2023Q2

REPORT INFORMATION
  Report Type: Spontaneous
  Country: US (occurrence: US)
  Receive Date: 20230511
  Receipt Date: 20230517
  Transmission Date: 20230722
  Serious: No
  Sender: FDA-Public Use
  Company Number: US-PFIZER INC-PV202300012803

PATIENT
  Age: 80 Year
  Sex: Female
  Weight: 48.98 kg

DRUGS (2)
  1. IBRANCE [Suspect]
     Active Substance: PALBOCICLIB
     Indication: Breast cancer
     Dosage: 120 MG, CYCLIC (28 DAY CYCLE)
  2. IBRANCE [Suspect]
     Active Substance: PALBOCICLIB
     Dosage: 75 MG, CYCLIC (ONCE DAILY FOR 21 DAYS)

REACTIONS (4)
  - Hypoacusis [Unknown]
  - Cough [Unknown]
  - Dysphonia [Unknown]
  - Product prescribing error [Unknown]
